FAERS Safety Report 19322766 (Version 1)
Quarter: 2021Q2

REPORT INFORMATION
  Report Type: Spontaneous
  Country: US (occurrence: US)
  Receive Date: 20210527
  Receipt Date: 20210527
  Transmission Date: 20210717
  Serious: No
  Sender: FDA-Public Use
  Company Number: US-GLAXOSMITHKLINE-USCH2021030970

PATIENT
  Age: 72 Year
  Sex: Male

DRUGS (5)
  1. NICODERM CQ [Suspect]
     Active Substance: NICOTINE
     Indication: DRUG WITHDRAWAL MAINTENANCE THERAPY
     Dosage: UNK
  2. NICODERM CQ [Suspect]
     Active Substance: NICOTINE
  3. NICODERM CQ [Suspect]
     Active Substance: NICOTINE
     Indication: DRUG WITHDRAWAL MAINTENANCE THERAPY
     Dosage: UNK
  4. VICODIN [Suspect]
     Active Substance: ACETAMINOPHEN\HYDROCODONE BITARTRATE
     Indication: PRODUCT USED FOR UNKNOWN INDICATION
     Dosage: 4 TIMES A DAY
  5. XANAX [Suspect]
     Active Substance: ALPRAZOLAM
     Indication: PRODUCT USED FOR UNKNOWN INDICATION
     Dosage: 4 TIMES A DAY

REACTIONS (2)
  - Abnormal dreams [Recovered/Resolved]
  - Wrong technique in product usage process [Unknown]
